FAERS Safety Report 18706324 (Version 2)
Quarter: 2021Q1

REPORT INFORMATION
  Report Type: Spontaneous
  Country: US (occurrence: US)
  Receive Date: 20210106
  Receipt Date: 20210218
  Transmission Date: 20210419
  Serious: No
  Sender: FDA-Public Use
  Company Number: US-ASTRAZENECA-2020SF66757

PATIENT
  Age: 808 Month
  Sex: Female
  Weight: 74.8 kg

DRUGS (3)
  1. PULMICORT FLEXHALER [Suspect]
     Active Substance: BUDESONIDE
     Indication: BRONCHITIS
     Dosage: ONE PUFF TWICE EACH DAY SEASONALLY FROM SEPTEMBER THROUGH SPRING ONLY
     Route: 055
     Dates: start: 202009
  2. PULMICORT FLEXHALER [Suspect]
     Active Substance: BUDESONIDE
     Indication: BRONCHITIS
     Dosage: DAILY THROUGH THE FALL AND SPRING SEASONS
     Route: 055
     Dates: start: 201709
  3. PULMICORT FLEXHALER [Suspect]
     Active Substance: BUDESONIDE
     Indication: BRONCHITIS
     Dosage: ONE PUFF AS NEEDED FOR SYMPTOMS SINCE AT LEAST 10 YEARS AGO
     Route: 055
     Dates: end: 201709

REACTIONS (10)
  - Body height decreased [Unknown]
  - Drug delivery system malfunction [Unknown]
  - Incorrect dose administered by device [Unknown]
  - Device use issue [Unknown]
  - Visual impairment [Not Recovered/Not Resolved]
  - Device issue [Unknown]
  - Weight fluctuation [Not Recovered/Not Resolved]
  - Off label use [Not Recovered/Not Resolved]
  - Poor quality device used [Unknown]
  - Intentional device misuse [Unknown]

NARRATIVE: CASE EVENT DATE: 202011
